FAERS Safety Report 21039562 (Version 5)
Quarter: 2022Q4

REPORT INFORMATION
  Report Type: Other
  Country: CA (occurrence: CA)
  Receive Date: 20220704
  Receipt Date: 20221205
  Transmission Date: 20230112
  Serious: Yes (Other)
  Sender: FDA-Public Use
  Company Number: CA-PFIZER INC-202200908143

PATIENT
  Age: 71 Year
  Sex: Male

DRUGS (3)
  1. GELFOAM [Suspect]
     Active Substance: GELATIN\THROMBIN HUMAN
     Indication: Transcatheter arterial chemoembolisation
     Dosage: UNK
     Route: 065
     Dates: start: 20200630, end: 20200630
  2. DOXORUBICIN HYDROCHLORIDE [Suspect]
     Active Substance: DOXORUBICIN HYDROCHLORIDE
     Indication: Transcatheter arterial chemoembolisation
     Dosage: 100 MG
     Route: 013
     Dates: start: 20200630, end: 20200630
  3. LIPIODOL ULTRA-FLUIDE [Suspect]
     Active Substance: ETHIODIZED OIL
     Indication: Transcatheter arterial chemoembolisation
     Dosage: 8 ML, 1X/DAY
     Route: 013
     Dates: start: 20200630, end: 20200630

REACTIONS (3)
  - Off label use [Unknown]
  - Skin injury [Recovered/Resolved with Sequelae]
  - Embolism [Recovered/Resolved with Sequelae]

NARRATIVE: CASE EVENT DATE: 20200630
